FAERS Safety Report 17956040 (Version 2)
Quarter: 2022Q2

REPORT INFORMATION
  Report Type: Spontaneous
  Country: US (occurrence: US)
  Receive Date: 20200629
  Receipt Date: 20220506
  Transmission Date: 20220720
  Serious: No
  Sender: FDA-Public Use
  Company Number: US-PFIZER INC-2019366528

PATIENT
  Age: 66 Year
  Sex: Female

DRUGS (1)
  1. ESTRING [Suspect]
     Active Substance: ESTRADIOL
     Dosage: 2 MG, EVERY 3 MONTHS (1 VAGINAL RING AS DEEPLY INTO VAGINAL VAULT;REMAIN IN PLACE FOR 3 MONTHS)
     Route: 067

REACTIONS (3)
  - Circumstance or information capable of leading to medication error [Unknown]
  - Dyslexia [Unknown]
  - Malaise [Unknown]
